FAERS Safety Report 21067759 (Version 1)
Quarter: 2022Q3

REPORT INFORMATION
  Report Type: Spontaneous
  Country: US (occurrence: US)
  Receive Date: 20220712
  Receipt Date: 20220712
  Transmission Date: 20221026
  Serious: No
  Sender: FDA-Public Use
  Company Number: US-ORGANON-O2207USA000717

PATIENT
  Sex: Female

DRUGS (5)
  1. PREGNYL [Suspect]
     Active Substance: CHORIOGONADOTROPIN ALFA
     Indication: Infertility female
     Dosage: 10000 UNIT, CONC. : 10,000 UNIT MDV60, MIX WITH 1 ML OF DILUENT AND INJECT 10,000 UNITS UNDER THE SK
     Route: 030
     Dates: start: 20220406
  2. STERILE WATER [Suspect]
     Active Substance: WATER
     Dosage: UNK, MIX WITH 1 ML OF DILUENT AND INJECT 10,000 UNITS UNDER THE SKIN (SUBCUTANEOUS INJECTION) AS DIR
     Route: 030
     Dates: start: 20220406
  3. PREGNYL [Concomitant]
     Active Substance: CHORIOGONADOTROPIN ALFA
     Dosage: UNK, CONC. : 10000 UNIT
  4. STERILE WATER [Concomitant]
     Active Substance: WATER
     Dosage: UNK
  5. METFORMIN [Concomitant]
     Active Substance: METFORMIN HYDROCHLORIDE
     Dosage: UNK

REACTIONS (2)
  - Hypersensitivity [Unknown]
  - Injection site reaction [Unknown]

NARRATIVE: CASE EVENT DATE: 20220101
